FAERS Safety Report 19681627 (Version 1)
Quarter: 2021Q3

REPORT INFORMATION
  Report Type: Report from Study
  Country: RU (occurrence: RU)
  Receive Date: 20210810
  Receipt Date: 20210810
  Transmission Date: 20211014
  Serious: Yes (Other)
  Sender: FDA-Public Use
  Company Number: RU-ASTRAZENECA-2021A664320

PATIENT
  Age: 20541 Day
  Sex: Male
  Weight: 73 kg

DRUGS (11)
  1. BRILINTA [Suspect]
     Active Substance: TICAGRELOR
     Indication: MYOCARDIAL INFARCTION
     Route: 048
     Dates: start: 20210717
  2. BRILINTA [Suspect]
     Active Substance: TICAGRELOR
     Indication: STENT PLACEMENT
     Route: 048
     Dates: start: 20210717
  3. ATORVASTATIN [Concomitant]
     Active Substance: ATORVASTATIN
  4. ROSUVASTATIN. [Concomitant]
     Active Substance: ROSUVASTATIN
  5. CELECOXIB. [Concomitant]
     Active Substance: CELECOXIB
  6. FENULES [Concomitant]
  7. BISOPROLOL [Concomitant]
     Active Substance: BISOPROLOL
  8. BRILINTA [Suspect]
     Active Substance: TICAGRELOR
     Indication: VASCULAR GRAFT
     Route: 048
     Dates: start: 20210717
  9. CELEBREX [Concomitant]
     Active Substance: CELECOXIB
  10. ESOMEPRAZOLE. [Concomitant]
     Active Substance: ESOMEPRAZOLE MAGNESIUM
  11. PRESTARIUM (PERINDOPRIL) [Concomitant]

REACTIONS (2)
  - COVID-19 [Not Recovered/Not Resolved]
  - Blood pressure decreased [Recovered/Resolved]

NARRATIVE: CASE EVENT DATE: 20210718
